FAERS Safety Report 7910129-9 (Version None)
Quarter: 2011Q4

REPORT INFORMATION
  Report Type: 
  Country: None (occurrence: None)
  Receive Date: 20111111
  Receipt Date: 20111017
  Transmission Date: 20120403
  Serious: Yes (Other)
  Sender: FDA-Public Use
  Company Number: GB-ROCHE-782440

PATIENT

DRUGS (3)
  1. TACROLIMUS [Suspect]
     Indication: RENAL TRANSPLANT
     Route: 065
  2. ZENAPAX [Suspect]
     Indication: RENAL TRANSPLANT
     Route: 065
  3. MYCOPHENOLATE MOFETIL (CELLCEPT) [Suspect]
     Indication: PROPHYLAXIS AGAINST TRANSPLANT REJECTION
     Route: 065

REACTIONS (5)
  - BACTERIAL INFECTION [None]
  - CYTOMEGALOVIRUS INFECTION [None]
  - URINARY TRACT INFECTION [None]
  - DIABETES MELLITUS [None]
  - WOUND INFECTION [None]
